FAERS Safety Report 9934911 (Version 1)
Quarter: 2014Q1

REPORT INFORMATION
  Report Type: Spontaneous
  Country: US (occurrence: US)
  Receive Date: 20140228
  Receipt Date: 20140228
  Transmission Date: 20141002
  Serious: No
  Sender: FDA-Public Use
  Company Number: US-009507513-1402USA012393

PATIENT
  Age: 43 Year
  Sex: Female

DRUGS (1)
  1. VICTRELIS [Suspect]
     Indication: HEPATITIS C
     Dosage: 800 MG, TID
     Route: 048
     Dates: start: 20131130, end: 201401

REACTIONS (4)
  - Fall [Unknown]
  - Drug ineffective [Unknown]
  - Diarrhoea [Unknown]
  - Alopecia [Unknown]
